FAERS Safety Report 6620286-2 (Version None)
Quarter: 2010Q1

REPORT INFORMATION
  Report Type: 
  Country: None (occurrence: None)
  Receive Date: 20100308
  Receipt Date: 20100308
  Transmission Date: 20100710
  Serious: No
  Sender: FDA-Public Use
  Company Number: None

PATIENT
  Age: 23 Year
  Sex: Male

DRUGS (1)
  1. BICILLIN [Suspect]
     Indication: PROPHYLAXIS
     Dosage: ONE TIME IM, ONE TIME INJECTION
     Route: 030

REACTIONS (1)
  - INJECTION SITE RASH [None]
